FAERS Safety Report 8490880 (Version 4)
Quarter: 2012Q4

REPORT INFORMATION
  Report Type: 
  Country: SE (occurrence: SE)
  Receive Date: 20120403
  Receipt Date: 20120830
  Transmission Date: 20130627
  Serious: Yes (Other)
  Sender: FDA-Public Use
  Company Number: SE-JNJFOC-20120400385

PATIENT
  Age: 57 None
  Sex: Female

DRUGS (2)
  1. NICORETTE MINT [Suspect]
     Indication: SMOKING CESSATION THERAPY
     Dosage: 8 to 10 tablets
     Route: 048
     Dates: start: 20111227, end: 20120318
  2. VITAMINS NOS [Concomitant]
     Indication: PRODUCT USED FOR UNKNOWN INDICATION
     Route: 065

REACTIONS (2)
  - Tooth erosion [Not Recovered/Not Resolved]
  - Tooth fracture [Not Recovered/Not Resolved]
